FAERS Safety Report 4543849-7 (Version None)
Quarter: 2005Q1

REPORT INFORMATION
  Report Type: 
  Country: None (occurrence: None)
  Receive Date: 20050103
  Receipt Date: 20041112
  Transmission Date: 20050727
  Serious: Yes (Hospitalization)
  Sender: FDA-Public Use
  Company Number: GXKR2004FR00588

PATIENT
  Age: 56 Year
  Sex: Male

DRUGS (3)
  1. BISOPROLOL (NGX) (BISOPROLOL) UNKNOWN [Suspect]
     Dosage: 2.5 MG, ORAL
     Route: 048
  2. CARVEDILOL [Suspect]
  3. ATORVASTATIN (ATORVASTATIN) [Concomitant]

REACTIONS (6)
  - ALDOLASE INCREASED [None]
  - ASPARTATE AMINOTRANSFERASE INCREASED [None]
  - ASTHENIA [None]
  - DYSPHAGIA [None]
  - GUILLAIN-BARRE SYNDROME [None]
  - QUADRIPARESIS [None]
